FAERS Safety Report 19807579 (Version 1)
Quarter: 2021Q3

REPORT INFORMATION
  Report Type: Spontaneous
  Country: US (occurrence: US)
  Receive Date: 20210908
  Receipt Date: 20210908
  Transmission Date: 20211014
  Serious: No
  Sender: FDA-Public Use
  Company Number: None

PATIENT
  Age: 32 Year
  Sex: Female
  Weight: 56.25 kg

DRUGS (1)
  1. CASIRIVIMAB?IMDEVIMAB [Suspect]
     Active Substance: CASIRIVIMAB\IMDEVIMAB
     Indication: SARS-COV-2 TEST POSITIVE
     Dates: start: 20210908, end: 20210908

REACTIONS (5)
  - Nasal mucosal discolouration [None]
  - Nasal congestion [None]
  - Productive cough [None]
  - Pyrexia [None]
  - Upper respiratory tract congestion [None]

NARRATIVE: CASE EVENT DATE: 20210908
